FAERS Safety Report 6263853-0 (Version None)
Quarter: 2009Q3

REPORT INFORMATION
  Report Type: 
  Country: None (occurrence: None)
  Receive Date: 20090710
  Receipt Date: 20090702
  Transmission Date: 20100115
  Serious: Yes (Death, Hospitalization)
  Sender: FDA-Public Use
  Company Number: FR-CELGENEUS-056-C5013-09050456

PATIENT
  Sex: Female

DRUGS (10)
  1. REVLIMID [Suspect]
     Indication: MULTIPLE MYELOMA
     Route: 048
     Dates: start: 20070405
  2. REVLIMID [Suspect]
     Route: 048
     Dates: start: 20070618, end: 20070910
  3. REVLIMID [Suspect]
     Route: 048
     Dates: start: 20070910, end: 20071105
  4. REVLIMID [Suspect]
     Route: 048
     Dates: start: 20071203, end: 20080206
  5. REVLIMID [Suspect]
     Route: 048
     Dates: start: 20080207, end: 20090318
  6. ASPEGIC 1000 [Concomitant]
     Indication: DRUG USE FOR UNKNOWN INDICATION
     Route: 065
     Dates: start: 20070401
  7. EFFEXOR [Concomitant]
     Indication: DRUG USE FOR UNKNOWN INDICATION
     Route: 048
     Dates: start: 20060901
  8. ZELITREX [Concomitant]
     Indication: DRUG USE FOR UNKNOWN INDICATION
     Route: 048
     Dates: start: 20070201
  9. SPECIAFOLDINE [Concomitant]
     Indication: DRUG USE FOR UNKNOWN INDICATION
     Route: 048
     Dates: start: 20070301
  10. MALOCIDE [Concomitant]
     Indication: DRUG USE FOR UNKNOWN INDICATION
     Route: 065
     Dates: start: 20080201

REACTIONS (2)
  - INTESTINAL ISCHAEMIA [None]
  - SEPTIC SHOCK [None]
